FAERS Safety Report 7265608-7 (Version None)
Quarter: 2011Q1

REPORT INFORMATION
  Report Type: 
  Country: None (occurrence: None)
  Receive Date: 20110131
  Receipt Date: 20100830
  Transmission Date: 20110831
  Serious: Yes (Hospitalization, Other)
  Sender: FDA-Public Use
  Company Number: US-BAYER-201024884NA

PATIENT
  Sex: Female
  Weight: 76.818 kg

DRUGS (6)
  1. YASMIN [Suspect]
     Indication: ACNE
  2. YAZ [Suspect]
     Indication: ORAL CONTRACEPTION
     Route: 048
     Dates: start: 20071017, end: 20080329
  3. YASMIN [Suspect]
     Indication: ORAL CONTRACEPTION
     Route: 048
     Dates: start: 20011210, end: 20020310
  4. YAZ [Suspect]
     Indication: ACNE
  5. CENTRUM [Concomitant]
  6. SLOW FE [Concomitant]
     Indication: ANAEMIA

REACTIONS (7)
  - WHITE BLOOD CELL COUNT INCREASED [None]
  - ABDOMINAL PAIN UPPER [None]
  - CHOLECYSTITIS CHRONIC [None]
  - GALLBLADDER CHOLESTEROLOSIS [None]
  - DIARRHOEA [None]
  - NAUSEA [None]
  - VOMITING [None]
